FAERS Safety Report 8360374-6 (Version None)
Quarter: 2012Q2

REPORT INFORMATION
  Report Type: 
  Country: None (occurrence: None)
  Receive Date: 20120515
  Receipt Date: 20120502
  Transmission Date: 20120825
  Serious: Yes (Death)
  Sender: FDA-Public Use
  Company Number: US-JNJFOC-20120401904

PATIENT
  Age: 83 Year
  Sex: Male

DRUGS (6)
  1. ACETAMINOPHEN [Suspect]
     Indication: PAIN MANAGEMENT
     Route: 065
  2. TRAMADOL HYDROCHLORIDE [Suspect]
     Indication: PAIN MANAGEMENT
     Route: 065
  3. BENZODIAZEPINE NOS [Suspect]
     Indication: ANTIDEPRESSANT THERAPY
     Route: 065
  4. BENADRYL [Suspect]
     Indication: ANTIALLERGIC THERAPY
     Route: 065
  5. ACETAMINOPHEN [Suspect]
     Indication: PYREXIA
     Route: 065
  6. CITALOPRAM HYDROBROMIDE [Suspect]
     Indication: ANTIDEPRESSANT THERAPY
     Route: 065

REACTIONS (5)
  - HOMICIDE [None]
  - HALLUCINATION [None]
  - PRODUCT QUALITY ISSUE [None]
  - COMPLETED SUICIDE [None]
  - ABNORMAL BEHAVIOUR [None]
